FAERS Safety Report 10400350 (Version 1)
Quarter: 2014Q3

REPORT INFORMATION
  Report Type: Spontaneous
  Country: FR (occurrence: FR)
  Receive Date: 20140821
  Receipt Date: 20140821
  Transmission Date: 20150326
  Serious: Yes (Hospitalization)
  Sender: FDA-Public Use
  Company Number: FR-PFIZER INC-2014232633

PATIENT
  Age: 90 Year
  Sex: Female

DRUGS (11)
  1. LEVOTHYROX [Concomitant]
     Active Substance: LEVOTHYROXINE
     Dosage: UNK
  2. DIGOXIN. [Concomitant]
     Active Substance: DIGOXIN
     Dosage: UNK
  3. DOLIPRANE [Concomitant]
     Active Substance: ACETAMINOPHEN
     Dosage: UNK
  4. TRIATEC [Suspect]
     Active Substance: RAMIPRIL
     Dosage: 1250 UG, DAILY
     Route: 048
     Dates: start: 20140612
  5. CORDARONE [Suspect]
     Active Substance: AMIODARONE HYDROCHLORIDE
     Dosage: 1 DF, DAILY
     Route: 048
     Dates: start: 20140615
  6. PLAVIX [Suspect]
     Active Substance: CLOPIDOGREL BISULFATE
     Dosage: 1 DF, DAILY
     Route: 048
     Dates: start: 20140612, end: 20140718
  7. PREVISCAN [Suspect]
     Active Substance: FLUINDIONE
     Dosage: 1 DF, DAILY
     Route: 048
     Dates: start: 20140615, end: 20140718
  8. CARDENSIEL [Concomitant]
     Active Substance: BISOPROLOL FUMARATE
     Dosage: UNK
  9. KARDEGIC [Concomitant]
     Active Substance: ASPIRIN LYSINE
     Dosage: UNK
  10. INEXIUM [Suspect]
     Active Substance: ESOMEPRAZOLE
     Dosage: 1 DF, DAILY
     Route: 048
     Dates: start: 20140612, end: 20140718
  11. LASILIX [Suspect]
     Active Substance: FUROSEMIDE
     Dosage: 250 MG, DAILY
     Route: 048
     Dates: start: 20140612, end: 20140718

REACTIONS (1)
  - Agranulocytosis [Recovering/Resolving]

NARRATIVE: CASE EVENT DATE: 20140718
